FAERS Safety Report 23673273 (Version 1)
Quarter: 2024Q1

REPORT INFORMATION
  Report Type: Other
  Country: AU (occurrence: AU)
  Receive Date: 20240326
  Receipt Date: 20240326
  Transmission Date: 20240410
  Serious: Yes (Other)
  Sender: FDA-Public Use
  Company Number: AU-LUPIN PHARMACEUTICALS INC.-2024-02391

PATIENT
  Age: 54 Year
  Sex: Female

DRUGS (2)
  1. METFORMIN [Suspect]
     Active Substance: METFORMIN HYDROCHLORIDE
     Indication: Product used for unknown indication
     Dosage: UNK
     Route: 065
  2. KESIMPTA [Suspect]
     Active Substance: OFATUMUMAB
     Indication: Product used for unknown indication
     Dosage: UNK
     Route: 065

REACTIONS (14)
  - Diarrhoea [Unknown]
  - Alopecia [Unknown]
  - Anal incontinence [Unknown]
  - Dry skin [Unknown]
  - COVID-19 [Unknown]
  - Gait inability [Unknown]
  - Feeling cold [Unknown]
  - Headache [Unknown]
  - Hypoaesthesia [Unknown]
  - Nail ridging [Unknown]
  - Nervousness [Unknown]
  - Paraesthesia [Unknown]
  - Paralysis [Unknown]
  - Pruritus [Unknown]
